FAERS Safety Report 23766194 (Version 1)
Quarter: 2024Q2

REPORT INFORMATION
  Report Type: Spontaneous
  Country: BE (occurrence: BE)
  Receive Date: 20240422
  Receipt Date: 20240422
  Transmission Date: 20240716
  Serious: Yes (Hospitalization, Other)
  Sender: FDA-Public Use
  Company Number: BE-BoehringerIngelheim-2024-BI-022579

PATIENT
  Age: 35 Year
  Sex: Female

DRUGS (17)
  1. NEVIRAPINE [Suspect]
     Active Substance: NEVIRAPINE
     Indication: HIV infection
  2. RALTEGRAVIR [Suspect]
     Active Substance: RALTEGRAVIR
     Indication: HIV infection
     Dates: start: 2009
  3. TIPRANAVIR [Concomitant]
     Active Substance: TIPRANAVIR
     Indication: HIV infection
  4. ZIDOVUDINE [Concomitant]
     Active Substance: ZIDOVUDINE
     Indication: HIV infection
  5. ZIDOVUDINE [Concomitant]
     Active Substance: ZIDOVUDINE
  6. ZALCITABINE [Concomitant]
     Active Substance: ZALCITABINE
     Indication: HIV infection
  7. ABACAVIR [Concomitant]
     Active Substance: ABACAVIR
     Indication: HIV infection
  8. STAVUDINE [Concomitant]
     Active Substance: STAVUDINE
     Indication: HIV infection
  9. AMPRENAVIR [Concomitant]
     Active Substance: AMPRENAVIR
     Indication: HIV infection
  10. LOPINAVIR [Concomitant]
     Active Substance: LOPINAVIR
     Indication: HIV infection
  11. RITONAVIR [Concomitant]
     Active Substance: RITONAVIR
     Indication: HIV infection
  12. FOSCARNET [Concomitant]
     Active Substance: FOSCARNET
     Indication: HIV infection
     Dosage: 90 MG/KG/DOSE
     Route: 042
  13. ENFUVIRTIDE [Concomitant]
     Active Substance: ENFUVIRTIDE
     Indication: HIV infection
     Route: 042
  14. ENFUVIRTIDE [Concomitant]
     Active Substance: ENFUVIRTIDE
     Route: 058
  15. DOLUTEGRAVIR [Concomitant]
     Active Substance: DOLUTEGRAVIR
     Indication: HIV infection
  16. FOSTEMSAVIR [Concomitant]
     Active Substance: FOSTEMSAVIR
     Indication: HIV infection
  17. DORAVIRINE [Concomitant]
     Active Substance: DORAVIRINE
     Indication: HIV infection

REACTIONS (11)
  - Progressive multifocal leukoencephalopathy [Unknown]
  - Pneumocystis jirovecii pneumonia [Unknown]
  - Depression [Not Recovered/Not Resolved]
  - Acute kidney injury [Unknown]
  - Myocarditis [Unknown]
  - Cachexia [Unknown]
  - Drug resistance [Unknown]
  - Gene mutation [Unknown]
  - Drug intolerance [Unknown]
  - Mycobacterium avium complex infection [Unknown]
  - Virologic failure [Unknown]

NARRATIVE: CASE EVENT DATE: 20190101
